FAERS Safety Report 8381116-4 (Version None)
Quarter: 2012Q2

REPORT INFORMATION
  Report Type: 
  Country: None (occurrence: None)
  Receive Date: 20120522
  Receipt Date: 20120509
  Transmission Date: 20120825
  Serious: Yes (Other)
  Sender: FDA-Public Use
  Company Number: 2012HGS-003529

PATIENT
  Sex: Female
  Weight: 77.4 kg

DRUGS (7)
  1. BENLYSTA [Suspect]
     Indication: SYSTEMIC LUPUS ERYTHEMATOSUS
     Dosage: 770 MG, 1 IN 1 M, INTRAVENOUS DRIP
     Route: 041
     Dates: start: 20120118
  2. FLUCONAZOLE [Concomitant]
  3. IBUPROFEN TABLETS [Concomitant]
  4. OXYCONTIN (OXYCODONE HYDROCHLORIDE) (OXYCODONE HYDROCHLORIDE) [Concomitant]
  5. NEXIUM [Concomitant]
  6. MELOXICAM [Concomitant]
  7. MODAFINIL (MODAFINIL) (MODAFINIL) [Concomitant]

REACTIONS (5)
  - LYMPHADENOPATHY [None]
  - ANXIETY [None]
  - HALLUCINATION [None]
  - HEPATIC ENZYME INCREASED [None]
  - THYROID NEOPLASM [None]
